FAERS Safety Report 19438790 (Version 1)
Quarter: 2021Q2

REPORT INFORMATION
  Report Type: Spontaneous
  Country: ES (occurrence: ES)
  Receive Date: 20210618
  Receipt Date: 20210618
  Transmission Date: 20210717
  Serious: Yes (Death, Other)
  Sender: FDA-Public Use
  Company Number: ES-MYLANLABS-2021M1035526

PATIENT
  Age: 76 Year
  Sex: Male
  Weight: 83 kg

DRUGS (4)
  1. FUROSEMIDA                         /00032601/ [Interacting]
     Active Substance: FUROSEMIDE
     Indication: POLYURIA
     Dosage: LA VELOCIDAD DE PC FUROSEMIDA FUE VARIANDO A LO LARGO DE LOS D?AS, RECIBIENDO
     Route: 042
     Dates: start: 20200328, end: 20200331
  2. LOPINAVIR/RITONAVIR [Suspect]
     Active Substance: LOPINAVIR\RITONAVIR
     Indication: COVID-19
     Dosage: 400 MILLIGRAM, QOD (400 MG C/12 H)
     Route: 048
     Dates: start: 20200323, end: 20200403
  3. TOCILIZUMAB. [Interacting]
     Active Substance: TOCILIZUMAB
     Indication: COVID-19
     Dosage: 600 MILLIGRAM, TOTAL
     Route: 042
     Dates: start: 20200324, end: 20200325
  4. HIDROXICLOROQUINA                  /00072601/ [Interacting]
     Active Substance: HYDROXYCHLOROQUINE
     Indication: COVID-19
     Dosage: 400 MG C/12 H 1? D?A, DESPU?S 200 MG C/12 H
     Route: 048
     Dates: start: 20200323, end: 20200401

REACTIONS (5)
  - Acute kidney injury [Recovered/Resolved]
  - Drug interaction [Unknown]
  - Hypernatraemia [Recovered/Resolved]
  - Pancreatitis acute [Fatal]
  - Off label use [Unknown]

NARRATIVE: CASE EVENT DATE: 20200329
